FAERS Safety Report 11298326 (Version 2)
Quarter: 2015Q4

REPORT INFORMATION
  Report Type: Spontaneous
  Country: US (occurrence: US)
  Receive Date: 20150722
  Receipt Date: 20151104
  Transmission Date: 20160304
  Serious: No
  Sender: FDA-Public Use
  Company Number: US-ELI_LILLY_AND_COMPANY-US201109002036

PATIENT
  Sex: Female

DRUGS (4)
  1. EVISTA [Suspect]
     Active Substance: RALOXIFENE HYDROCHLORIDE
     Indication: OSTEOPOROSIS
     Dosage: 60 MG, QD
  2. EVISTA [Suspect]
     Active Substance: RALOXIFENE HYDROCHLORIDE
     Dosage: 60 MG, QD
  3. FORTEO [Suspect]
     Active Substance: TERIPARATIDE
     Indication: OSTEOPOROSIS
     Dosage: 20 UG, QD
     Dates: start: 2006, end: 2008
  4. IMURAN [Concomitant]
     Active Substance: AZATHIOPRINE

REACTIONS (12)
  - Flatulence [Unknown]
  - Eye swelling [Unknown]
  - Hyperhidrosis [Unknown]
  - Hypersensitivity [Unknown]
  - Muscle spasms [Unknown]
  - Compression fracture [Unknown]
  - Pollakiuria [Unknown]
  - Abdominal distension [Unknown]
  - Nausea [Unknown]
  - Poor quality sleep [Unknown]
  - Hot flush [Unknown]
  - Incorrect drug administration duration [Recovered/Resolved]
